FAERS Safety Report 20169128 (Version 1)
Quarter: 2021Q4

REPORT INFORMATION
  Report Type: Spontaneous
  Country: US (occurrence: None)
  Receive Date: 20211209
  Receipt Date: 20211209
  Transmission Date: 20220304
  Serious: Yes (Hospitalization)
  Sender: FDA-Public Use
  Company Number: None

PATIENT
  Age: 74 Year
  Sex: Male

DRUGS (1)
  1. CEFEPIME [Suspect]
     Active Substance: CEFEPIME HYDROCHLORIDE
     Indication: Wound infection pseudomonas
     Dosage: FREQUENCY : TWICE A DAY;?
     Route: 042
     Dates: start: 20211108, end: 20211120

REACTIONS (6)
  - Wound infection pseudomonas [None]
  - Confusional state [None]
  - Aggression [None]
  - Paranoia [None]
  - Encephalopathy [None]
  - Toxicity to various agents [None]

NARRATIVE: CASE EVENT DATE: 20211124
